FAERS Safety Report 10416505 (Version 1)
Quarter: 2014Q3

REPORT INFORMATION
  Report Type: Spontaneous
  Country: US (occurrence: US)
  Receive Date: 20140828
  Receipt Date: 20140828
  Transmission Date: 20150326
  Serious: Yes (Other)
  Sender: FDA-Public Use
  Company Number: US-GLAXOSMITHKLINE-A1085927A

PATIENT
  Age: 77 Year
  Sex: Female

DRUGS (6)
  1. CALCIUM [Concomitant]
     Active Substance: CALCIUM
  2. LIPITOR [Concomitant]
     Active Substance: ATORVASTATIN CALCIUM
  3. CALCITONIN [Concomitant]
     Active Substance: CALCITONIN
  4. RYTHMOL [Suspect]
     Active Substance: PROPAFENONE HYDROCHLORIDE
     Indication: HEART RATE IRREGULAR
     Route: 065
  5. VITAMIN D [Concomitant]
     Active Substance: CHOLECALCIFEROL
  6. COUMADIN [Concomitant]
     Active Substance: WARFARIN SODIUM

REACTIONS (1)
  - Cardiac flutter [Unknown]

NARRATIVE: CASE EVENT DATE: 2012
